FAERS Safety Report 6832934-2 (Version None)
Quarter: 2010Q3

REPORT INFORMATION
  Report Type: 
  Country: None (occurrence: None)
  Receive Date: 20100712
  Receipt Date: 20070522
  Transmission Date: 20110219
  Serious: No
  Sender: FDA-Public Use
  Company Number: US-PFIZER INC-2007021716

PATIENT
  Sex: Male
  Weight: 80.74 kg

DRUGS (10)
  1. CHANTIX [Suspect]
     Indication: SMOKING CESSATION THERAPY
     Dates: start: 20070314
  2. LEXAPRO [Concomitant]
     Indication: MOOD ALTERED
  3. GEODON [Concomitant]
  4. SEROQUEL [Concomitant]
  5. METOPROLOL [Concomitant]
  6. CLONIDINE [Concomitant]
     Indication: HYPERTENSION
  7. BENICAR [Concomitant]
     Indication: HYPERTENSION
  8. FUROSEMIDE [Concomitant]
     Indication: HYPERTENSION
  9. NORVASC [Concomitant]
     Indication: HYPERTENSION
  10. KLOR-CON [Concomitant]
     Dates: end: 20070305

REACTIONS (1)
  - DEPRESSION [None]
